FAERS Safety Report 20949855 (Version 2)
Quarter: 2022Q2

REPORT INFORMATION
  Report Type: Spontaneous
  Country: US (occurrence: US)
  Receive Date: 20220613
  Receipt Date: 20220629
  Transmission Date: 20220720
  Serious: Yes (Other)
  Sender: FDA-Public Use
  Company Number: US-PFIZER INC-202200819324

PATIENT
  Age: 78 Year
  Sex: Male
  Weight: 64.399 kg

DRUGS (6)
  1. NIVESTYM [Suspect]
     Active Substance: FILGRASTIM-AAFI
     Dosage: UNK (STRENGTH: 300 MCG/0.5 ML; QTY: 20 KITS FOR 28 DAYS, REFILLS: 5)
     Dates: start: 20220505
  2. ONDANSETRON HCL [Concomitant]
     Active Substance: ONDANSETRON HYDROCHLORIDE
     Dosage: UNK (STRENGTH: 40 MG/20 ML; QTY: 2 VIALS FOR 28 DAYS, REFILLS: 5)
     Dates: start: 20220323
  3. DEXAMETHASONE SODIUM PHOSPHATE [Concomitant]
     Active Substance: DEXAMETHASONE SODIUM PHOSPHATE
     Dosage: UNK (QTY: 4 VIALS FOR 28 DAYS, RENTS: 5)
     Dates: start: 20220323
  4. OMEPRAZOLE [Concomitant]
     Active Substance: OMEPRAZOLE
     Dosage: 1 DF, DAILY (CAPSULE DELAYED RELEASE)
     Route: 048
  5. ONDANSETRON HCL [Concomitant]
     Active Substance: ONDANSETRON HYDROCHLORIDE
     Dosage: 4 MG, AS NEEDED (6 HOURS AS NEEDED; QTY: 90 TABLETS FOR 30 DAYS, REFILLS: 1)
     Route: 048
     Dates: start: 20220428
  6. ELIGARD [Concomitant]
     Active Substance: LEUPROLIDE ACETATE
     Dosage: 7.5 MG, MONTHLY (QTY: 1 KIT FOR 28 DAYS, REFILLS: 11)
     Route: 058
     Dates: start: 20220512

REACTIONS (2)
  - Cerebrovascular accident [Unknown]
  - Amnesia [Unknown]
